FAERS Safety Report 7080072-9 (Version None)
Quarter: 2010Q4

REPORT INFORMATION
  Report Type: 
  Country: None (occurrence: None)
  Receive Date: 20101102
  Receipt Date: 20101022
  Transmission Date: 20110411
  Serious: Yes (Hospitalization)
  Sender: FDA-Public Use
  Company Number: JP-GENENTECH-308791

PATIENT
  Sex: Female

DRUGS (4)
  1. OMALIZUMAB [Suspect]
     Indication: ASTHMA
     Dosage: 75 MG, 1/MONTH
     Route: 058
     Dates: start: 20100402
  2. OMALIZUMAB [Suspect]
     Dosage: UNK
     Dates: start: 20100430
  3. OMALIZUMAB [Suspect]
     Dosage: UNK
     Route: 058
     Dates: start: 20100528
  4. ADVAIR DISKUS 100/50 [Concomitant]
     Indication: PRODUCT USED FOR UNKNOWN INDICATION
     Dosage: UNK
     Dates: start: 20091005

REACTIONS (1)
  - STATUS ASTHMATICUS [None]
